FAERS Safety Report 7023773-0 (Version None)
Quarter: 2010Q4

REPORT INFORMATION
  Report Type: 
  Country: None (occurrence: None)
  Receive Date: 20101001
  Receipt Date: 20100924
  Transmission Date: 20110411
  Serious: Yes (Hospitalization)
  Sender: FDA-Public Use
  Company Number: FR-US-EMD SERONO, INC.-220002N06FRA

PATIENT
  Sex: Female
  Weight: 79 kg

DRUGS (8)
  1. SAIZEN [Suspect]
     Indication: HYPOPITUITARISM
     Dates: start: 20030625
  2. HYDROCORTISONE [Suspect]
     Indication: HYPOPITUITARISM
     Route: 048
     Dates: start: 19820101
  3. KLIOGEST [Suspect]
     Indication: HYPOPITUITARISM
     Route: 048
     Dates: start: 20030806
  4. LEVOTHYROX 100 [Suspect]
     Indication: HYPOPITUITARISM
     Route: 048
     Dates: start: 20051207
  5. FENOFIBRATE [Suspect]
     Indication: HYPERTRIGLYCERIDAEMIA
     Route: 048
     Dates: start: 20040622
  6. OROCAL D3 [Suspect]
     Indication: OSTEOPENIA
     Route: 048
     Dates: start: 20060404
  7. PROZAC [Suspect]
     Indication: DEPRESSION
     Route: 048
     Dates: start: 20030806
  8. ZOVIRAX [Concomitant]
     Indication: LUMBAR PUNCTURE
     Route: 042
     Dates: end: 20060501

REACTIONS (2)
  - MENINGISM [None]
  - VIRAL TONSILLITIS [None]
